FAERS Safety Report 11343571 (Version 1)
Quarter: 2015Q3

REPORT INFORMATION
  Report Type: Spontaneous
  Country: BR (occurrence: None)
  Receive Date: 20150804
  Receipt Date: 20150804
  Transmission Date: 20151125
  Serious: Yes (Other)
  Sender: FDA-Public Use
  Company Number: BR-TORRENT-00003027

PATIENT
  Age: 34 Year
  Sex: Female

DRUGS (2)
  1. VENLIFT OD (INN:VENLAFAXINE HYDROCHLORIDE) [Suspect]
     Active Substance: VENLAFAXINE HYDROCHLORIDE
     Indication: DEPRESSION
     Dosage: NUMBER OF UNITS IN INTERVAL IS UNKNOWN/ORAL  ?ORAL
     Route: 048
     Dates: start: 201505, end: 201506
  2. VENLIFT OD (INN:VENLAFAXINE HYDROCHLORIDE) [Suspect]
     Active Substance: VENLAFAXINE HYDROCHLORIDE
     Indication: DEPRESSION
     Route: 048
     Dates: start: 201507

REACTIONS (5)
  - Suicide attempt [None]
  - Menorrhagia [None]
  - Menstruation irregular [None]
  - Urinary tract infection [None]
  - Drug ineffective [None]

NARRATIVE: CASE EVENT DATE: 20150719
